FAERS Safety Report 25674181 (Version 1)
Quarter: 2025Q3

REPORT INFORMATION
  Report Type: Spontaneous
  Country: US (occurrence: US)
  Receive Date: 20250813
  Receipt Date: 20250813
  Transmission Date: 20251021
  Serious: No
  Sender: JOHNSON AND JOHNSON
  Company Number: US-JNJFOC-20250813012

PATIENT
  Age: 27 Year
  Sex: Female

DRUGS (3)
  1. RILPIVIRINE [Suspect]
     Active Substance: RILPIVIRINE
     Indication: HIV infection
     Route: 065
     Dates: start: 202411, end: 20250728
  2. CABOTEGRAVIR [Suspect]
     Active Substance: CABOTEGRAVIR
     Indication: HIV infection
     Route: 065
     Dates: start: 202411, end: 20250728
  3. BIKTARVY [Concomitant]
     Active Substance: BICTEGRAVIR SODIUM\EMTRICITABINE\TENOFOVIR ALAFENAMIDE FUMARATE
     Indication: HIV infection

REACTIONS (1)
  - Virologic failure [Recovering/Resolving]

NARRATIVE: CASE EVENT DATE: 20250728
